FAERS Safety Report 25922094 (Version 1)
Quarter: 2025Q4

REPORT INFORMATION
  Report Type: Spontaneous
  Country: US (occurrence: US)
  Receive Date: 20251015
  Receipt Date: 20251015
  Transmission Date: 20260118
  Serious: No
  Sender: ROCHE
  Company Number: US-ROCHE-10000407085

PATIENT
  Sex: Female

DRUGS (2)
  1. ACTEMRA [Suspect]
     Active Substance: TOCILIZUMAB
     Indication: Rheumatoid arthritis
     Dosage: STRENGTH: 400 MG/20 ML?STRENGTH: 80 MG/ML
     Route: 042
     Dates: start: 202306
  2. ACTEMRA [Suspect]
     Active Substance: TOCILIZUMAB
     Dosage: STRENGTH : 80 MG/ 4 ML
     Route: 042
     Dates: start: 202306

REACTIONS (3)
  - Drug ineffective [Unknown]
  - Hand deformity [Unknown]
  - Wrist deformity [Unknown]
